FAERS Safety Report 13534637 (Version 5)
Quarter: 2017Q2

REPORT INFORMATION
  Report Type: Spontaneous
  Country: GR (occurrence: GR)
  Receive Date: 20170511
  Receipt Date: 20170629
  Transmission Date: 20170830
  Serious: Yes (Other)
  Sender: FDA-Public Use
  Company Number: GR-AMGEN-GRCSP2011053151

PATIENT
  Sex: Female

DRUGS (8)
  1. ONE ALPHA-C [Concomitant]
     Dosage: 1 MG, UNK
  2. MEDROL [Concomitant]
     Active Substance: METHYLPREDNISOLONE
     Dosage: 4 MG, UNK
  3. PPI [Concomitant]
     Active Substance: UNSPECIFIED INGREDIENT
     Dosage: UNK
  4. GLUCOSAMINE [Concomitant]
     Active Substance: GLUCOSAMINE
     Dosage: UNK
  5. PROLIA [Suspect]
     Active Substance: DENOSUMAB
     Indication: OSTEOPOROSIS
     Dosage: UNK
     Route: 065
     Dates: start: 2011
  6. TARDYFERON [Concomitant]
     Active Substance: FERROUS SULFATE
     Dosage: UNK
  7. ARAVA [Concomitant]
     Active Substance: LEFLUNOMIDE
     Dosage: UNK
  8. ENBREL [Suspect]
     Active Substance: ETANERCEPT
     Indication: PRODUCT USED FOR UNKNOWN INDICATION
     Dosage: UNK UNK, WEEKLY
     Route: 065
     Dates: start: 2008

REACTIONS (2)
  - Injection site erythema [Recovering/Resolving]
  - Cellulitis [Not Recovered/Not Resolved]

NARRATIVE: CASE EVENT DATE: 20111012
